FAERS Safety Report 21237412 (Version 1)
Quarter: 2022Q3

REPORT INFORMATION
  Report Type: Spontaneous
  Country: US (occurrence: US)
  Receive Date: 20220822
  Receipt Date: 20220822
  Transmission Date: 20221027
  Serious: No
  Sender: FDA-Public Use
  Company Number: US-PFIZER INC-PV202200045620

PATIENT
  Sex: Female

DRUGS (4)
  1. XELJANZ XR [Suspect]
     Active Substance: TOFACITINIB CITRATE
     Indication: Rheumatoid arthritis
     Dosage: 11 MG
     Route: 048
     Dates: start: 2020
  2. HUMIRA [Suspect]
     Active Substance: ADALIMUMAB
     Dosage: UNK
     Route: 058
  3. COVID-19 VACCINE NOS [Suspect]
     Active Substance: COVID-19 VACCINE NOS
     Indication: COVID-19 immunisation
     Dosage: DOSE 2, SINGLE
     Route: 030
  4. COVID-19 VACCINE NOS [Suspect]
     Active Substance: COVID-19 VACCINE NOS
     Dosage: DOSE 1, SINGLE
     Route: 030

REACTIONS (23)
  - White blood cell count decreased [Recovered/Resolved]
  - Osteoarthritis [Unknown]
  - Influenza like illness [Recovered/Resolved]
  - Memory impairment [Unknown]
  - Depression [Unknown]
  - Joint stiffness [Recovering/Resolving]
  - Loss of personal independence in daily activities [Recovering/Resolving]
  - Gait disturbance [Recovering/Resolving]
  - Neuralgia [Unknown]
  - Muscle spasms [Unknown]
  - Hypoaesthesia [Unknown]
  - Burning sensation [Unknown]
  - Pyrexia [Recovered/Resolved]
  - Peripheral swelling [Unknown]
  - Mouth swelling [Unknown]
  - Swollen tongue [Unknown]
  - Swelling face [Unknown]
  - Back pain [Recovered/Resolved]
  - Pain in extremity [Unknown]
  - Pain [Recovered/Resolved]
  - Chest pain [Recovered/Resolved]
  - Musculoskeletal disorder [Unknown]
  - Arthralgia [Recovering/Resolving]

NARRATIVE: CASE EVENT DATE: 20220101
